FAERS Safety Report 9399723 (Version 3)
Quarter: 2013Q3

REPORT INFORMATION
  Report Type: Spontaneous
  Country: FR (occurrence: FR)
  Receive Date: 20130710
  Receipt Date: 20130826
  Transmission Date: 20140515
  Serious: Yes (Other)
  Sender: FDA-Public Use
  Company Number: ACO_37152_2013

PATIENT
  Age: 53 Year
  Sex: Female
  Weight: 55 kg

DRUGS (6)
  1. FAMPYRA [Suspect]
     Indication: GAIT DISTURBANCE
     Route: 048
     Dates: start: 20130612, end: 20130614
  2. CELICEPT (MYCOPHENOLATE MOFETIL) [Concomitant]
  3. SEROPLEX (ESCITALOPRAM OXALATE) [Concomitant]
  4. LEVOCARNIL (LEVOCARNITINE) [Concomitant]
  5. MANTADIX (AMANTIDINE HYDROCHLORIDE) [Concomitant]
  6. OXYBUTYNINE (OXYBUTYNINE HYDROCHLORIDE) [Concomitant]

REACTIONS (1)
  - Epilepsy [None]
